FAERS Safety Report 5726836-2 (Version None)
Quarter: 2008Q2

REPORT INFORMATION
  Report Type: 
  Country: None (occurrence: None)
  Receive Date: 20080502
  Receipt Date: 20080422
  Transmission Date: 20081010
  Serious: Yes (Death, Hospitalization)
  Sender: FDA-Public Use
  Company Number: US-ABBOTT-08P-163-0440811-00

PATIENT
  Sex: Male
  Weight: 47.216 kg

DRUGS (1)
  1. HUMIRA [Suspect]
     Indication: RHEUMATOID ARTHRITIS
     Route: 058
     Dates: start: 20030429, end: 20071001

REACTIONS (2)
  - PNEUMONITIS [None]
  - PSEUDOMONAS INFECTION [None]
